FAERS Safety Report 8244128-7 (Version None)
Quarter: 2012Q1

REPORT INFORMATION
  Report Type: 
  Country: None (occurrence: None)
  Receive Date: 20120329
  Receipt Date: 20120323
  Transmission Date: 20120608
  Serious: Yes (Other)
  Sender: FDA-Public Use
  Company Number: BR-PFIZER INC-2012076804

PATIENT
  Age: 28 Year
  Sex: Female
  Weight: 61 kg

DRUGS (1)
  1. NORDETTE-21 [Suspect]
     Indication: CONTRACEPTION
     Dosage: [LEVONORGESTREL 0.15MG] / [ETHINYL ESTRADIOL 0.03MG], ONCE DAILY
     Route: 048
     Dates: start: 20050101, end: 20120301

REACTIONS (2)
  - AMENORRHOEA [None]
  - SURGERY [None]
